FAERS Safety Report 21126740 (Version 1)
Quarter: 2022Q3

REPORT INFORMATION
  Report Type: Spontaneous
  Country: US (occurrence: None)
  Receive Date: 20220725
  Receipt Date: 20220725
  Transmission Date: 20221027
  Serious: Yes (Hospitalization)
  Sender: FDA-Public Use
  Company Number: None

PATIENT
  Age: 64 Year
  Sex: Female

DRUGS (23)
  1. GLATIRAMER [Suspect]
     Active Substance: GLATIRAMER
     Indication: Multiple sclerosis
     Dosage: FREQUENCY : AS DIRECTED;?
     Route: 058
     Dates: start: 20171110
  2. ARIPIPRAZOLE TAB [Concomitant]
  3. ATENOLOL [Concomitant]
     Active Substance: ATENOLOL
  4. BACLOFEN TAB [Concomitant]
  5. CALCIUM [Concomitant]
     Active Substance: CALCIUM
  6. CALCIUM CARBONATE [Concomitant]
     Active Substance: CALCIUM CARBONATE
  7. CARDIZEM LA TAB [Concomitant]
  8. GLATIRAMER INJ [Concomitant]
  9. LOSARTAN/HCT TAB [Concomitant]
  10. METHYLPHENID TAB [Concomitant]
  11. FOLIC ACID [Concomitant]
     Active Substance: FOLIC ACID
  12. NAPROXEN [Concomitant]
     Active Substance: NAPROXEN
  13. OXYBUTYNIN TAB [Concomitant]
  14. OXYCOD/APAP TAB [Concomitant]
  15. PERCOCET [Concomitant]
     Active Substance: ACETAMINOPHEN\OXYCODONE HYDROCHLORIDE
  16. POT CL MICRO TAB [Concomitant]
  17. POTASSIUM TAB [Concomitant]
  18. PREDNISONE [Concomitant]
     Active Substance: PREDNISONE
  19. TAMSULOSIN [Concomitant]
     Active Substance: TAMSULOSIN
  20. TOLTERODINE CAP [Concomitant]
  21. TOLTERODINE CAP [Concomitant]
  22. VENLAFAXINE CAP [Concomitant]
  23. VITAMIN D3 TAB [Concomitant]

REACTIONS (2)
  - Hospitalisation [None]
  - Therapy interrupted [None]

NARRATIVE: CASE EVENT DATE: 20220725
